FAERS Safety Report 25995443 (Version 3)
Quarter: 2025Q4

REPORT INFORMATION
  Report Type: Report from Study
  Country: CA (occurrence: CA)
  Receive Date: 20251104
  Receipt Date: 20251229
  Transmission Date: 20260118
  Serious: Yes (Other)
  Sender: AUROBINDO
  Company Number: CA-AUROBINDO-AUR-APL-2025-055364

PATIENT
  Sex: Female
  Weight: 3 kg

DRUGS (8)
  1. EMTRICITABINE\TENOFOVIR DISOPROXIL [Suspect]
     Active Substance: EMTRICITABINE\TENOFOVIR DISOPROXIL
     Indication: HIV infection
     Dosage: UNK
  2. NEVIRAPINE [Suspect]
     Active Substance: NEVIRAPINE
     Indication: Prophylaxis against HIV infection
     Dosage: 6 MILLIGRAM/KILOGRAM, TWO TIMES A DAY
     Route: 065
  3. NEVIRAPINE [Suspect]
     Active Substance: NEVIRAPINE
     Dosage: 200 MILLIGRAM/SQ. METER, TWO TIMES A DAY
     Route: 065
  4. DOLUTEGRAVIR SODIUM [Suspect]
     Active Substance: DOLUTEGRAVIR SODIUM
     Indication: HIV infection
     Dosage: UNK
  5. LAMIVUDINE [Suspect]
     Active Substance: LAMIVUDINE
     Indication: Prophylaxis against HIV infection
     Dosage: 2.0 MILLIGRAM/KILOGRAM, TWO TIMES A DAY
     Route: 065
  6. LAMIVUDINE [Suspect]
     Active Substance: LAMIVUDINE
     Dosage: 4 MILLIGRAM/KILOGRAM, TWO TIMES A DAY
     Route: 065
  7. ZIDOVUDINE [Suspect]
     Active Substance: ZIDOVUDINE
     Indication: Prophylaxis against HIV infection
     Dosage: 12.0 MILLIGRAM/KILOGRAM
     Route: 065
  8. ZIDOVUDINE [Suspect]
     Active Substance: ZIDOVUDINE
     Dosage: 4 MILLIGRAM/KILOGRAM, TWO TIMES A DAY
     Route: 065

REACTIONS (5)
  - Exposure via breast milk [Unknown]
  - Foetal exposure during pregnancy [Unknown]
  - Neutropenia neonatal [Unknown]
  - Therapy cessation [Unknown]
  - Treatment noncompliance [Unknown]
